FAERS Safety Report 17513994 (Version 1)
Quarter: 2020Q1

REPORT INFORMATION
  Report Type: Spontaneous
  Country: US (occurrence: US)
  Receive Date: 20200306
  Receipt Date: 20200306
  Transmission Date: 20200409
  Serious: Yes (Life-Threatening, Hospitalization, Other)
  Sender: FDA-Public Use
  Company Number: NVSC2020US064221

PATIENT
  Age: 45 Year
  Sex: Female

DRUGS (1)
  1. ADALIMUMAB [Suspect]
     Active Substance: ADALIMUMAB
     Indication: CROHN^S DISEASE
     Dosage: UNK (SINCE LAST 7 MONTHS)
     Route: 065

REACTIONS (7)
  - Escherichia infection [Unknown]
  - Hyponatraemia [Unknown]
  - Leukoencephalopathy [Unknown]
  - Meningitis bacterial [Unknown]
  - Generalised tonic-clonic seizure [Unknown]
  - Intestinal obstruction [Unknown]
  - Meningitis viral [Unknown]
